FAERS Safety Report 6795082-6 (Version None)
Quarter: 2010Q2

REPORT INFORMATION
  Report Type: 
  Country: None (occurrence: None)
  Receive Date: 20100625
  Receipt Date: 20100617
  Transmission Date: 20101027
  Serious: Yes (Death, Hospitalization)
  Sender: FDA-Public Use
  Company Number: PHHO2008IE09841

PATIENT
  Sex: Female
  Weight: 55 kg

DRUGS (2)
  1. CGS 20267 T30748+TAB [Suspect]
     Indication: BREAST CANCER
     Dosage: 2.5 MG, UNK
     Route: 048
     Dates: start: 20061012, end: 20080824
  2. ZOMETA [Concomitant]
     Dosage: 4 MG 3 WEEKLY
     Dates: start: 20080819

REACTIONS (8)
  - BACK PAIN [None]
  - CEREBRAL ISCHAEMIA [None]
  - COLITIS [None]
  - DEATH [None]
  - GAMMA-GLUTAMYLTRANSFERASE INCREASED [None]
  - METASTASES TO LIVER [None]
  - METASTASES TO SPINE [None]
  - SPINAL COMPRESSION FRACTURE [None]
